FAERS Safety Report 8325774-9 (Version None)
Quarter: 2012Q2

REPORT INFORMATION
  Report Type: 
  Country: None (occurrence: None)
  Receive Date: 20120501
  Receipt Date: 20120416
  Transmission Date: 20120825
  Serious: No
  Sender: FDA-Public Use
  Company Number: US-BIOGENIDEC-2012BI006185

PATIENT
  Age: 32 Year
  Sex: Female

DRUGS (3)
  1. AVONEX [Concomitant]
     Indication: MULTIPLE SCLEROSIS
     Route: 030
  2. TYSABRI [Suspect]
     Indication: MULTIPLE SCLEROSIS
     Route: 042
     Dates: start: 20100329, end: 20110215
  3. TYSABRI [Suspect]
     Route: 042
     Dates: start: 20120203, end: 20120203

REACTIONS (4)
  - HYPERSENSITIVITY [None]
  - BLOOD PRESSURE INCREASED [None]
  - RASH [None]
  - CHEST DISCOMFORT [None]
